FAERS Safety Report 9541917 (Version 2)
Quarter: 2013Q4

REPORT INFORMATION
  Report Type: Spontaneous
  Country: IN (occurrence: IN)
  Receive Date: 20130923
  Receipt Date: 20131106
  Transmission Date: 20140711
  Serious: Yes (Other)
  Sender: FDA-Public Use
  Company Number: PHHY2013IN102307

PATIENT
  Age: 27 Year
  Sex: Female

DRUGS (7)
  1. CLOZAPINE [Suspect]
     Indication: SCHIZOPHRENIA, PARANOID TYPE
     Dosage: UNK
  2. CLOZAPINE [Suspect]
     Dosage: 225 MG, UNK
  3. CLOZAPINE [Suspect]
     Dosage: 200 MG, UNK
  4. CLOZAPINE [Suspect]
     Dosage: 175 MG, UNK
  5. CLOZAPINE [Suspect]
     Dosage: 200 MG, UNK
  6. VALPROIC ACID [Suspect]
     Indication: GRAND MAL CONVULSION
     Dosage: 1000 MG, UNK
  7. VALPROIC ACID [Suspect]
     Dosage: 750 MG, UNK

REACTIONS (2)
  - Anaemia macrocytic [Recovering/Resolving]
  - Schizophrenia [Recovering/Resolving]
